FAERS Safety Report 6672536-4 (Version None)
Quarter: 2010Q2

REPORT INFORMATION
  Report Type: 
  Country: None (occurrence: None)
  Receive Date: 20100408
  Receipt Date: 20100324
  Transmission Date: 20101027
  Serious: No
  Sender: FDA-Public Use
  Company Number: US-JNJFOC-20100307335

PATIENT
  Sex: Female
  Weight: 61.24 kg

DRUGS (5)
  1. FENTANYL CITRATE [Suspect]
     Indication: RADICULAR PAIN
  2. FENTANYL CITRATE [Suspect]
     Route: 062
     Dates: start: 20100316
  3. LORTAB [Concomitant]
     Indication: BREAKTHROUGH PAIN
     Dosage: 10/325MG AS NEEDED ORALLY
     Route: 048
  4. SOMA [Concomitant]
     Indication: MUSCLE RELAXANT THERAPY
     Dosage: TABLET 350 MG ORALLY AS NEEDED
     Route: 048
  5. XANAX [Concomitant]
     Indication: HOT FLUSH
     Dosage: 0.5 MG 3 TIMES DAILY AS NEEDED
     Route: 048

REACTIONS (4)
  - APPLICATION SITE EROSION [None]
  - APPLICATION SITE ERYTHEMA [None]
  - DRUG ADMINISTRATION ERROR [None]
  - WRONG TECHNIQUE IN DRUG USAGE PROCESS [None]
